FAERS Safety Report 17084624 (Version 4)
Quarter: 2020Q1

REPORT INFORMATION
  Report Type: Spontaneous
  Country: US (occurrence: US)
  Receive Date: 20191127
  Receipt Date: 20200220
  Transmission Date: 20200409
  Serious: Yes (Other)
  Sender: FDA-Public Use
  Company Number: US-MALLINCKRODT-T201906945

PATIENT
  Age: 64 Year
  Sex: Female
  Weight: 77 kg

DRUGS (1)
  1. H.P. ACTHAR [Suspect]
     Active Substance: CORTICOTROPIN
     Indication: RHEUMATOID ARTHRITIS
     Dosage: 80 UNITS, 1 MILLILITER, TWICE A WEEK, AS DIRECTED
     Route: 058
     Dates: start: 201909, end: 202001

REACTIONS (5)
  - Surgery [Unknown]
  - Headache [Recovering/Resolving]
  - Depression [Unknown]
  - Hot flush [Recovered/Resolved]
  - Anuria [Unknown]

NARRATIVE: CASE EVENT DATE: 201910
